FAERS Safety Report 6836114-6 (Version None)
Quarter: 2010Q3

REPORT INFORMATION
  Report Type: 
  Country: None (occurrence: None)
  Receive Date: 20100713
  Receipt Date: 20100630
  Transmission Date: 20110219
  Serious: Yes (Hospitalization)
  Sender: FDA-Public Use
  Company Number: IT-ROCHE-712462

PATIENT
  Sex: Female

DRUGS (5)
  1. XELODA [Suspect]
     Indication: BREAST CANCER
     Route: 065
     Dates: start: 20100423, end: 20100527
  2. ZOLEDRONIC ACID [Suspect]
     Indication: PRODUCT USED FOR UNKNOWN INDICATION
     Route: 065
     Dates: start: 20100409, end: 20100513
  3. SEREUPIN [Concomitant]
     Indication: DEPRESSION
  4. CORDARONE [Concomitant]
  5. LOBIVON [Concomitant]
     Indication: HYPERTENSION

REACTIONS (6)
  - BALANCE DISORDER [None]
  - DYSARTHRIA [None]
  - GAIT DISTURBANCE [None]
  - INCONTINENCE [None]
  - NEUROPATHY PERIPHERAL [None]
  - SENSORIMOTOR DISORDER [None]
